FAERS Safety Report 6368600-X (Version None)
Quarter: 2009Q3

REPORT INFORMATION
  Report Type: 
  Country: None (occurrence: None)
  Receive Date: 20090917
  Receipt Date: 20090917
  Transmission Date: 20100115
  Serious: Yes (Life-Threatening, Other)
  Sender: FDA-Public Use
  Company Number: None

PATIENT
  Age: 59 Year
  Sex: Female
  Weight: 72.5755 kg

DRUGS (1)
  1. CYMBALTA [Suspect]
     Indication: BIPOLAR DISORDER
     Dosage: 60MG IN AM ONCE A DAY PO
     Route: 048
     Dates: start: 20080115, end: 20090907

REACTIONS (4)
  - IRRITABILITY [None]
  - MOOD SWINGS [None]
  - SUICIDAL BEHAVIOUR [None]
  - WITHDRAWAL SYNDROME [None]
